FAERS Safety Report 6106008-2 (Version None)
Quarter: 2009Q1

REPORT INFORMATION
  Report Type: 
  Country: None (occurrence: None)
  Receive Date: 20090306
  Receipt Date: 20090306
  Transmission Date: 20090719
  Serious: Yes (Disabling, Other)
  Sender: FDA-Public Use
  Company Number: None

PATIENT
  Age: 80 Year
  Sex: Female
  Weight: 53.5244 kg

DRUGS (2)
  1. CIPRO [Suspect]
     Indication: DYSURIA
     Dosage: 10 TABS 2X DAILY ORAL
     Route: 048
     Dates: start: 20090116
  2. VALTREX [Suspect]
     Indication: HERPES VIRUS INFECTION
     Dosage: 6 TABS 2X DAILY ORAL
     Route: 048

REACTIONS (4)
  - HYPOPHAGIA [None]
  - INSOMNIA [None]
  - MENTAL DISORDER [None]
  - RESTLESSNESS [None]
